FAERS Safety Report 22685954 (Version 11)
Quarter: 2023Q4

REPORT INFORMATION
  Report Type: Spontaneous
  Country: AU (occurrence: AU)
  Receive Date: 20230710
  Receipt Date: 20231207
  Transmission Date: 20240110
  Serious: Yes (Death, Other)
  Sender: FDA-Public Use
  Company Number: AU-BIOVITRUM-2023-AU-012446

PATIENT

DRUGS (2)
  1. EMPAVELI [Suspect]
     Active Substance: PEGCETACOPLAN
     Indication: Paroxysmal nocturnal haemoglobinuria
     Dosage: TWICE WEEK
     Route: 058
     Dates: start: 20230627
  2. EMPAVELI [Suspect]
     Active Substance: PEGCETACOPLAN
     Dosage: TWICE WEEKLY
     Route: 058
     Dates: start: 20230628

REACTIONS (9)
  - Transformation to acute myeloid leukaemia [Fatal]
  - Haemorrhage [Unknown]
  - Chronic myelomonocytic leukaemia [Unknown]
  - Pain [Unknown]
  - Product administration error [Unknown]
  - Panic attack [Unknown]
  - Anxiety [Unknown]
  - Overdose [Unknown]
  - Device delivery system issue [Unknown]

NARRATIVE: CASE EVENT DATE: 20230630
